FAERS Safety Report 25858889 (Version 4)
Quarter: 2025Q4

REPORT INFORMATION
  Report Type: Report from Study
  Country: US (occurrence: US)
  Receive Date: 20250929
  Receipt Date: 20251229
  Transmission Date: 20260118
  Serious: No
  Sender: TRAVERE THERAPEUTICS
  Company Number: US-TRAVERE-2025TVT01470

PATIENT
  Age: 53 Year
  Sex: Male
  Weight: 145.15 kg

DRUGS (3)
  1. FILSPARI [Suspect]
     Active Substance: SPARSENTAN
     Indication: IgA nephropathy
     Route: 048
     Dates: start: 20250818
  2. FILSPARI [Suspect]
     Active Substance: SPARSENTAN
     Route: 048
     Dates: start: 202510
  3. JARDIANCE [Concomitant]
     Active Substance: EMPAGLIFLOZIN

REACTIONS (6)
  - Gastrointestinal sounds abnormal [Recovering/Resolving]
  - Skin ulcer [None]
  - Dizziness [Recovering/Resolving]
  - Abdominal discomfort [None]
  - Dry mouth [Unknown]
  - Product administration error [Unknown]

NARRATIVE: CASE EVENT DATE: 20250818
